FAERS Safety Report 13571308 (Version 1)
Quarter: 2017Q2

REPORT INFORMATION
  Report Type: Spontaneous
  Country: US (occurrence: US)
  Receive Date: 20170522
  Receipt Date: 20170522
  Transmission Date: 20170830
  Serious: No
  Sender: FDA-Public Use
  Company Number: None

PATIENT
  Age: 34 Year
  Sex: Female
  Weight: 55.52 kg

DRUGS (2)
  1. BUPROPION XL 150MG [Suspect]
     Active Substance: BUPROPION
     Indication: FATIGUE
     Route: 048
     Dates: start: 20170407, end: 20170511
  2. BUPROPION XL 150MG [Suspect]
     Active Substance: BUPROPION
     Indication: DEPRESSION
     Route: 048
     Dates: start: 20170407, end: 20170511

REACTIONS (2)
  - Dyskinesia [None]
  - Hypoaesthesia [None]

NARRATIVE: CASE EVENT DATE: 20170511
